FAERS Safety Report 23301185 (Version 1)
Quarter: 2023Q4

REPORT INFORMATION
  Report Type: Spontaneous
  Country: US (occurrence: US)
  Receive Date: 20231215
  Receipt Date: 20231215
  Transmission Date: 20240110
  Serious: No
  Sender: FDA-Public Use
  Company Number: US-PFIZER INC-202300422663

PATIENT
  Age: 15 Year
  Sex: Male

DRUGS (1)
  1. GENOTROPIN [Suspect]
     Active Substance: SOMATROPIN
     Dosage: 3 MG, DAILY

REACTIONS (6)
  - Device use error [Unknown]
  - Device mechanical issue [Unknown]
  - Device leakage [Unknown]
  - Device colour issue [Unknown]
  - Device chemical property issue [Unknown]
  - Drug dose omission by device [Unknown]
